FAERS Safety Report 8728725 (Version 22)
Quarter: 2014Q4

REPORT INFORMATION
  Report Type: Spontaneous
  Country: US (occurrence: US)
  Receive Date: 20120817
  Receipt Date: 20141209
  Transmission Date: 20150529
  Serious: Yes (Hospitalization, Other)
  Sender: FDA-Public Use
  Company Number: PHEH2012US015911

PATIENT
  Sex: Male
  Weight: 89.81 kg

DRUGS (11)
  1. AREDIA [Suspect]
     Active Substance: PAMIDRONATE DISODIUM
     Indication: PRODUCT USED FOR UNKNOWN INDICATION
     Route: 042
  2. DEXAMETHASONE. [Concomitant]
     Active Substance: DEXAMETHASONE
     Indication: PRODUCT USED FOR UNKNOWN INDICATION
     Route: 065
  3. ALTEPLASE [Concomitant]
     Active Substance: ALTEPLASE
     Indication: PRODUCT USED FOR UNKNOWN INDICATION
     Route: 065
  4. OSELTAMIVIR [Concomitant]
     Active Substance: OSELTAMIVIR
     Indication: PRODUCT USED FOR UNKNOWN INDICATION
     Route: 065
  5. PREDNISONE. [Concomitant]
     Active Substance: PREDNISONE
     Indication: PRODUCT USED FOR UNKNOWN INDICATION
     Dosage: 5 MG, QOD
     Route: 065
  6. ZOMETA [Suspect]
     Active Substance: ZOLEDRONIC ACID
     Indication: BONE DISORDER
     Dosage: 4 MG, QMO
     Route: 042
  7. ZOMETA [Suspect]
     Active Substance: ZOLEDRONIC ACID
     Dosage: 4 MG, Q3MO
     Route: 065
     Dates: end: 20100115
  8. CYTOXAN [Concomitant]
     Active Substance: CYCLOPHOSPHAMIDE
     Indication: PRODUCT USED FOR UNKNOWN INDICATION
     Route: 065
  9. THALIDOMIDE [Concomitant]
     Active Substance: THALIDOMIDE
     Indication: PRODUCT USED FOR UNKNOWN INDICATION
     Dosage: 200 MG, QD
     Route: 065
  10. BORTEZOMIB [Concomitant]
     Active Substance: BORTEZOMIB
     Indication: PRODUCT USED FOR UNKNOWN INDICATION
     Route: 065
  11. ONDANSETRON [Concomitant]
     Active Substance: ONDANSETRON
     Indication: PRODUCT USED FOR UNKNOWN INDICATION
     Route: 065

REACTIONS (156)
  - Pyrexia [Unknown]
  - Bone loss [Unknown]
  - Bone lesion [Unknown]
  - Depression [Unknown]
  - Vascular calcification [Unknown]
  - Bursitis [Unknown]
  - Dilatation atrial [Unknown]
  - Hepatic cyst [Unknown]
  - Fracture [Unknown]
  - Hypoxia [Unknown]
  - Metastases to bone [Unknown]
  - Inappropriate antidiuretic hormone secretion [Unknown]
  - Dehydration [Unknown]
  - Toxic nodular goitre [Unknown]
  - Osteoarthritis [Unknown]
  - Hyperaemia [Unknown]
  - Tachycardia [Unknown]
  - Malaise [Unknown]
  - Bruxism [Unknown]
  - Myalgia [Unknown]
  - Pain in extremity [Unknown]
  - Influenza [Unknown]
  - Spondylolisthesis [Unknown]
  - Atelectasis [Unknown]
  - Muscle atrophy [Unknown]
  - Fall [Unknown]
  - Haemorrhoids [Unknown]
  - Hyperglycaemia [Unknown]
  - Neoplasm [Unknown]
  - Chronic kidney disease [Unknown]
  - Spinal cord compression [Unknown]
  - Bloody discharge [Unknown]
  - Goitre [Unknown]
  - Hyperthyroidism [Unknown]
  - Gait disturbance [Unknown]
  - Gingival pain [Unknown]
  - Soft tissue infection [Unknown]
  - Synovial cyst [Unknown]
  - Bronchospasm [Unknown]
  - Paronychia [Unknown]
  - Bronchitis [Unknown]
  - Aortic calcification [Unknown]
  - Cor pulmonale chronic [Unknown]
  - Respiratory tract infection [Unknown]
  - Nocturia [Unknown]
  - Back pain [Recovering/Resolving]
  - Rash [Unknown]
  - Overweight [Unknown]
  - Tooth abscess [Unknown]
  - Mouth haemorrhage [Unknown]
  - Toothache [Unknown]
  - Dental plaque [Unknown]
  - Tooth deposit [Unknown]
  - Neuropathy peripheral [Unknown]
  - Foot deformity [Unknown]
  - Deafness [Unknown]
  - Hyperkeratosis [Unknown]
  - Blood urine present [Unknown]
  - Pleural disorder [Unknown]
  - Proteinuria [Unknown]
  - Deformity [Unknown]
  - Cyanosis central [Unknown]
  - Intervertebral disc space narrowing [Unknown]
  - Exostosis [Unknown]
  - Ligament calcification [Unknown]
  - Arthralgia [Unknown]
  - Constipation [Unknown]
  - Tinnitus [Unknown]
  - Cough [Unknown]
  - Wheezing [Unknown]
  - Osteonecrosis of jaw [Recovering/Resolving]
  - Excessive granulation tissue [Unknown]
  - Exposed bone in jaw [Unknown]
  - Plasma cell myeloma [Unknown]
  - Gingival recession [Unknown]
  - Oral mucosal erythema [Unknown]
  - Sinusitis [Unknown]
  - Erythema [Unknown]
  - Rosacea [Unknown]
  - Emphysema [Unknown]
  - Radiculopathy [Unknown]
  - Thyroid mass [Unknown]
  - Pericardial effusion [Unknown]
  - Rib fracture [Unknown]
  - Mitral valve incompetence [Unknown]
  - Pulmonary fibrosis [Unknown]
  - Libido disorder [Unknown]
  - Memory impairment [Unknown]
  - Amnesia [Unknown]
  - Bone pain [Unknown]
  - Dyspnoea [Unknown]
  - Nasopharyngitis [Unknown]
  - Hypoaesthesia [Unknown]
  - Hot flush [Unknown]
  - Musculoskeletal discomfort [Unknown]
  - Gingivitis [Unknown]
  - Oropharyngeal plaque [Unknown]
  - Hypercalcaemia [Unknown]
  - Gingival bleeding [Unknown]
  - Oedema [Unknown]
  - Injury [Unknown]
  - Otitis externa [Unknown]
  - Malignant melanoma [Unknown]
  - Spinal fracture [Unknown]
  - Anxiety [Unknown]
  - Tooth discolouration [Unknown]
  - Ecchymosis [Unknown]
  - Upper-airway cough syndrome [Unknown]
  - Rhinitis allergic [Unknown]
  - Dyspepsia [Unknown]
  - Hyponatraemia [Unknown]
  - Pneumonia [Unknown]
  - Bone fragmentation [Unknown]
  - Oral discomfort [Unknown]
  - Pain in jaw [Unknown]
  - Periodontitis [Unknown]
  - Intervertebral disc protrusion [Unknown]
  - Facet joint syndrome [Unknown]
  - Ear pain [Unknown]
  - Dilatation ventricular [Unknown]
  - Renal cyst [Unknown]
  - Osteolysis [Unknown]
  - Metastases to spine [Unknown]
  - Wound [Unknown]
  - Loose tooth [Unknown]
  - Cervical spinal stenosis [Unknown]
  - Cerebral atrophy [Unknown]
  - Bone neoplasm [Unknown]
  - Infection [Unknown]
  - Anhedonia [Unknown]
  - Musculoskeletal pain [Unknown]
  - Ingrowing nail [Unknown]
  - Neck pain [Recovering/Resolving]
  - Insomnia [Unknown]
  - Flank pain [Unknown]
  - Dental caries [Unknown]
  - Chronic obstructive pulmonary disease [Recovered/Resolved]
  - Intervertebral disc degeneration [Unknown]
  - Vertebral osteophyte [Unknown]
  - Psoriasis [Unknown]
  - Pleural effusion [Unknown]
  - Pulmonary mass [Unknown]
  - Arthritis [Unknown]
  - Spinal osteoarthritis [Unknown]
  - Skin ulcer [Unknown]
  - Aortic disorder [Unknown]
  - Tricuspid valve incompetence [Unknown]
  - Lung infiltration [Unknown]
  - Hypertension [Unknown]
  - Vertebral column mass [Unknown]
  - Leukopenia [Unknown]
  - Osteosclerosis [Unknown]
  - Fatigue [Unknown]
  - Snoring [Unknown]
  - Feeling hot [Unknown]
  - Palpitations [Unknown]
